FAERS Safety Report 19977686 (Version 1)
Quarter: 2021Q4

REPORT INFORMATION
  Report Type: Spontaneous
  Country: US (occurrence: US)
  Receive Date: 20211020
  Receipt Date: 20211020
  Transmission Date: 20220303
  Serious: No
  Sender: FDA-Public Use
  Company Number: US-ALLERGAN-2117921US

PATIENT
  Age: 68 Year
  Sex: Female
  Weight: 43.54 kg

DRUGS (3)
  1. LINZESS [Suspect]
     Active Substance: LINACLOTIDE
     Indication: Constipation
     Dosage: 290 ?G, QD
     Route: 048
     Dates: start: 202008, end: 2021
  2. BOTOX [Concomitant]
     Active Substance: ONABOTULINUMTOXINA
  3. SKIN CREAMS [Concomitant]

REACTIONS (4)
  - Alopecia [Recovered/Resolved]
  - Fear of eating [Not Recovered/Not Resolved]
  - Diarrhoea [Recovered/Resolved]
  - Drug ineffective [Unknown]

NARRATIVE: CASE EVENT DATE: 20210201
